FAERS Safety Report 11067944 (Version 1)
Quarter: 2015Q2

REPORT INFORMATION
  Report Type: Spontaneous
  Country: GB (occurrence: GB)
  Receive Date: 20150427
  Receipt Date: 20150427
  Transmission Date: 20150821
  Serious: Yes (Other)
  Sender: FDA-Public Use
  Company Number: GB-JNJFOC-20150413625

PATIENT
  Age: 7 Decade
  Sex: Male

DRUGS (1)
  1. DOXORUBICIN [Suspect]
     Active Substance: DOXORUBICIN
     Indication: KAPOSI^S SARCOMA
     Route: 023

REACTIONS (3)
  - Incorrect route of drug administration [Unknown]
  - Skin necrosis [Recovered/Resolved]
  - Product use issue [Unknown]
